FAERS Safety Report 13434805 (Version 3)
Quarter: 2017Q2

REPORT INFORMATION
  Report Type: Report from Study
  Country: CA (occurrence: CA)
  Receive Date: 20170413
  Receipt Date: 20170605
  Transmission Date: 20170830
  Serious: Yes (Other)
  Sender: FDA-Public Use
  Company Number: CA-BAYER-2017-069722

PATIENT
  Age: 56 Year
  Sex: Male

DRUGS (6)
  1. KOVALTRY [Suspect]
     Active Substance: ANTIHEMOPHILIC FACTOR, HUMAN RECOMBINANT
     Indication: FACTOR VIII DEFICIENCY
     Dosage: LAST DATE OF INFUSION PRIOR TO EVENT ONSET
     Dates: start: 20170405, end: 20170405
  2. SILODOSIN [Concomitant]
     Active Substance: SILODOSIN
  3. HYDROMORPHONE [Concomitant]
     Active Substance: HYDROMORPHONE
  4. KOVALTRY [Suspect]
     Active Substance: ANTIHEMOPHILIC FACTOR, HUMAN RECOMBINANT
     Indication: FACTOR VIII DEFICIENCY
     Dosage: UNK
     Dates: start: 20170311
  5. ATENOLOL. [Concomitant]
     Active Substance: ATENOLOL
  6. DUTASTERIDE. [Concomitant]
     Active Substance: DUTASTERIDE

REACTIONS (2)
  - Heart rate increased [Unknown]
  - Haemorrhage [Recovered/Resolved]

NARRATIVE: CASE EVENT DATE: 20170405
